FAERS Safety Report 8353081-7 (Version None)
Quarter: 2012Q2

REPORT INFORMATION
  Report Type: 
  Country: None (occurrence: None)
  Receive Date: 20120511
  Receipt Date: 20120503
  Transmission Date: 20120825
  Serious: No
  Sender: FDA-Public Use
  Company Number: US-PFIZER INC-2012094028

PATIENT
  Age: 17 Year
  Sex: Female

DRUGS (1)
  1. EPIPEN [Suspect]
     Dosage: UNK

REACTIONS (5)
  - ACCIDENTAL EXPOSURE [None]
  - HEART RATE INCREASED [None]
  - HYPERTENSION [None]
  - PALLOR [None]
  - FEELING JITTERY [None]
